FAERS Safety Report 16148493 (Version 6)
Quarter: 2020Q2

REPORT INFORMATION
  Report Type: Spontaneous
  Country: GB (occurrence: GB)
  Receive Date: 20190402
  Receipt Date: 20200616
  Transmission Date: 20200713
  Serious: Yes (Hospitalization, Other)
  Sender: FDA-Public Use
  Company Number: PHHY2018GB144055

PATIENT
  Age: 62 Year
  Sex: Female

DRUGS (115)
  1. TAXOL [Suspect]
     Active Substance: PACLITAXEL
     Indication: BREAST CANCER
     Dosage: 156 MG, QW
     Route: 042
     Dates: start: 20180202, end: 20180518
  2. DEXAMETHASONE. [Concomitant]
     Active Substance: DEXAMETHASONE
     Indication: PRODUCT USED FOR UNKNOWN INDICATION
     Dosage: 8 MG, UNK (TAKEN PRIOR TO STUDY)
     Route: 042
  3. RANITIDINE. [Concomitant]
     Active Substance: RANITIDINE
     Dosage: TAKEN PRIOR TO STUDY
     Route: 042
     Dates: start: 20180202
  4. QUININE SULPHATE [Concomitant]
     Active Substance: QUININE SULFATE
     Indication: PRODUCT USED FOR UNKNOWN INDICATION
     Dosage: 200 MG, QD
     Route: 048
     Dates: start: 20040219
  5. COCODAMOL [Concomitant]
     Active Substance: ACETAMINOPHEN\CODEINE PHOSPHATE
     Indication: PRODUCT USED FOR UNKNOWN INDICATION
     Dosage: 30/500 MG FORM STRENGTH
     Route: 048
     Dates: start: 20030104, end: 20180225
  6. COCODAMOL [Concomitant]
     Active Substance: ACETAMINOPHEN\CODEINE PHOSPHATE
     Dosage: 1 DF, UNK (1 UG/LITRE)
     Route: 065
  7. CHLORPHENAMINE [Concomitant]
     Active Substance: CHLORPHENIRAMINE MALEATE
     Dosage: TAKEN PRIOR TO STUDY
     Route: 042
     Dates: start: 20180202
  8. METRONIDAZOLE. [Concomitant]
     Active Substance: METRONIDAZOLE
     Dosage: 400 MG, UNK
     Route: 065
     Dates: start: 20181122, end: 20181123
  9. METRONIDAZOLE. [Concomitant]
     Active Substance: METRONIDAZOLE
     Dosage: 400 MG, QD
     Route: 048
     Dates: start: 20190916, end: 20190916
  10. CYCLIZINE [Concomitant]
     Active Substance: CYCLIZINE
     Dosage: 50 MG
     Route: 048
     Dates: start: 20181102
  11. ZOLEDRONIC ACID [Concomitant]
     Active Substance: ZOLEDRONIC ACID
     Dosage: 4 MG, QD
     Route: 042
     Dates: start: 20181019
  12. FEXOFENADINE [Concomitant]
     Active Substance: FEXOFENADINE HYDROCHLORIDE
     Dosage: 180 MG, QD
     Route: 048
     Dates: start: 201910, end: 20191119
  13. CO-AMOXICLAV [Concomitant]
     Active Substance: AMOXICILLIN\CLAVULANATE POTASSIUM
     Indication: PRODUCT USED FOR UNKNOWN INDICATION
     Dosage: 625 MG, QD
     Route: 048
     Dates: start: 20190915, end: 20190916
  14. DUODERM [Concomitant]
     Indication: PRODUCT USED FOR UNKNOWN INDICATION
     Dosage: UNK
     Route: 061
     Dates: start: 20181220, end: 20190116
  15. TERBUTALINE [Concomitant]
     Active Substance: TERBUTALINE
     Indication: PRODUCT USED FOR UNKNOWN INDICATION
     Dosage: 800 UG, QD
     Route: 055
     Dates: start: 20030108
  16. PENTASA [Concomitant]
     Active Substance: MESALAMINE
     Indication: CROHN^S DISEASE
     Dosage: SACHETS
     Route: 048
     Dates: start: 20131217, end: 20180730
  17. DOXAZOSIN [Concomitant]
     Active Substance: DOXAZOSIN MESYLATE
     Dosage: 2 MG, QD
     Route: 048
     Dates: start: 20190908
  18. BENZYDAMINE [Concomitant]
     Active Substance: BENZYDAMINE
     Indication: PRODUCT USED FOR UNKNOWN INDICATION
     Dosage: MOUTHWASH
     Route: 065
     Dates: start: 20180414
  19. CHLORPHENAMINE [Concomitant]
     Active Substance: CHLORPHENIRAMINE MALEATE
     Indication: PRODUCT USED FOR UNKNOWN INDICATION
     Dosage: 10 MG, UNK (TAKEN PRIOR TO STUDY)
     Route: 042
  20. ADCAL-D3 [Concomitant]
     Active Substance: CALCIUM CARBONATE\CHOLECALCIFEROL
     Indication: PRODUCT USED FOR UNKNOWN INDICATION
     Dosage: 4 DF, QD
     Route: 048
     Dates: start: 20140127
  21. METRONIDAZOLE. [Concomitant]
     Active Substance: METRONIDAZOLE
     Indication: SEPSIS
     Dosage: 1500 MG, QD
     Route: 042
     Dates: start: 20181119, end: 20181124
  22. VANCOMYCIN [Concomitant]
     Active Substance: VANCOMYCIN
     Route: 042
     Dates: start: 20190527
  23. TEICOPLANIN [Concomitant]
     Active Substance: TEICOPLANIN
     Indication: PRODUCT USED FOR UNKNOWN INDICATION
     Dosage: 400 MG, UNK
     Route: 065
     Dates: start: 20181220, end: 20181224
  24. AQUACEL [Concomitant]
     Active Substance: CARBOXYMETHYLCELLULOSE SODIUM
     Indication: PRODUCT USED FOR UNKNOWN INDICATION
     Dosage: UNK
     Route: 065
  25. SANDO K [Concomitant]
     Indication: PRODUCT USED FOR UNKNOWN INDICATION
     Dosage: UNK
     Route: 065
  26. EUMOVATE [Concomitant]
     Active Substance: CLOBETASONE BUTYRATE
     Indication: PRURITUS
     Dosage: UNK
     Route: 065
  27. GLUCOSE [Concomitant]
     Active Substance: DEXTROSE
     Indication: GASTROINTESTINAL HAEMORRHAGE
     Dosage: 0.18NA CL 4% GLUCOSE
     Route: 042
     Dates: start: 20190523, end: 20190523
  28. GLUCOSE [Concomitant]
     Active Substance: DEXTROSE
     Dosage: 1000 ML
     Route: 065
     Dates: start: 10190525, end: 20190525
  29. ADCAL D3 [Concomitant]
     Active Substance: CALCIUM CARBONATE\CHOLECALCIFEROL
     Indication: PRODUCT USED FOR UNKNOWN INDICATION
     Dosage: 4 DF, QD
     Route: 048
     Dates: start: 20140127
  30. GENTAMYCIN [Concomitant]
     Active Substance: GENTAMICIN
     Dosage: 400 MG
     Route: 042
     Dates: start: 20190913, end: 20190913
  31. TRIMETHOPRIM. [Concomitant]
     Active Substance: TRIMETHOPRIM
     Indication: PRODUCT USED FOR UNKNOWN INDICATION
     Dosage: 200 MG, QD
     Route: 048
     Dates: start: 20190813, end: 20190815
  32. RANITIDINE. [Concomitant]
     Active Substance: RANITIDINE
     Dosage: 150 MG, QD
     Route: 065
     Dates: start: 20181123, end: 20181123
  33. COCODAMOL [Concomitant]
     Active Substance: ACETAMINOPHEN\CODEINE PHOSPHATE
     Dosage: 1 DF
     Route: 065
     Dates: start: 20180302
  34. HYDROXOCOBALAMIN [Concomitant]
     Active Substance: HYDROXOCOBALAMIN
     Indication: PRODUCT USED FOR UNKNOWN INDICATION
     Dosage: 1 MG/1 ML
     Route: 030
     Dates: start: 20020115
  35. FLUCONAZOLE. [Concomitant]
     Active Substance: FLUCONAZOLE
     Dosage: AS NEEDED
     Route: 048
     Dates: start: 201910
  36. BENDROFLUMETHIAZIDE [Concomitant]
     Active Substance: BENDROFLUMETHIAZIDE
     Dosage: 2.5 MG, QD
     Route: 048
     Dates: start: 20190908
  37. METRONIDAZOLE. [Concomitant]
     Active Substance: METRONIDAZOLE
     Dosage: 500 MG, QD
     Route: 042
     Dates: start: 20181119, end: 20181121
  38. METRONIDAZOLE. [Concomitant]
     Active Substance: METRONIDAZOLE
     Dosage: 500 MG, QD
     Route: 042
     Dates: start: 20190526
  39. PARACETAMOL [Concomitant]
     Active Substance: ACETAMINOPHEN
     Indication: OEDEMA
     Dosage: 1 G, UNK
     Route: 048
     Dates: start: 20180916, end: 20181002
  40. PARACETAMOL [Concomitant]
     Active Substance: ACETAMINOPHEN
     Dosage: AS NEEDED
     Route: 048
     Dates: start: 20181003
  41. CHLORHEXIDINE [Concomitant]
     Active Substance: CHLORHEXIDINE
     Indication: PRODUCT USED FOR UNKNOWN INDICATION
     Dosage: AS NEEDED
     Route: 065
     Dates: start: 20181019
  42. CYCLIZINE [Concomitant]
     Active Substance: CYCLIZINE
     Indication: PRODUCT USED FOR UNKNOWN INDICATION
     Dosage: 50 MG, UNK
     Route: 048
  43. VANCOMYCIN [Concomitant]
     Active Substance: VANCOMYCIN
     Indication: SEPSIS
     Dosage: 2000 MG, UNK
     Route: 042
  44. VANCOMYCIN [Concomitant]
     Active Substance: VANCOMYCIN
     Route: 042
     Dates: start: 20181120, end: 20181122
  45. DOXYCYCLINE. [Concomitant]
     Active Substance: DOXYCYCLINE
     Dosage: 100 MG, QD
     Route: 048
     Dates: start: 20181114, end: 20181119
  46. ONDANSETRON [Concomitant]
     Active Substance: ONDANSETRON
     Dosage: AS NEEDED
     Route: 042
     Dates: start: 20181119, end: 20181122
  47. EUMOVATE [Concomitant]
     Active Substance: CLOBETASONE BUTYRATE
     Indication: SKIN ABRASION
     Dosage: 2 OT, QD
     Route: 061
     Dates: start: 20190403
  48. SILVER NITRATE. [Concomitant]
     Active Substance: SILVER NITRATE
     Dosage: UNK
     Route: 061
     Dates: start: 20190527, end: 20190527
  49. FEXOFENADINE [Concomitant]
     Active Substance: FEXOFENADINE HYDROCHLORIDE
     Indication: PRURITUS
     Dosage: 180 MG, QD
     Route: 048
     Dates: start: 20190403, end: 20190403
  50. GENTAMYCIN [Concomitant]
     Active Substance: GENTAMICIN
     Dosage: 400 MG
     Route: 042
     Dates: start: 20190526, end: 20190526
  51. FOLIC ACID. [Concomitant]
     Active Substance: FOLIC ACID
     Indication: PRODUCT USED FOR UNKNOWN INDICATION
     Dosage: 5 MG, QD
     Route: 048
     Dates: start: 20030207
  52. DOXAZOSIN [Concomitant]
     Active Substance: DOXAZOSIN MESYLATE
     Indication: PRODUCT USED FOR UNKNOWN INDICATION
     Dosage: 2 MG, QD
     Route: 048
     Dates: start: 20040816
  53. METRONIDAZOLE. [Concomitant]
     Active Substance: METRONIDAZOLE
     Dosage: 1500 MG, QD
     Route: 042
     Dates: start: 20190526
  54. PARACETAMOL [Concomitant]
     Active Substance: ACETAMINOPHEN
     Dosage: 1 G
     Route: 042
     Dates: start: 20181220, end: 20181220
  55. TRANEXAMIC ACID. [Concomitant]
     Active Substance: TRANEXAMIC ACID
     Dosage: 1 G
     Route: 048
     Dates: start: 20190804, end: 20190806
  56. VANCOMYCIN [Concomitant]
     Active Substance: VANCOMYCIN
     Dosage: 2000 MG, UNK
     Route: 042
     Dates: start: 20181119, end: 20181119
  57. HEPARIN SODIUM. [Concomitant]
     Active Substance: HEPARIN SODIUM
     Indication: PROPHYLAXIS
     Dosage: 5 ML
     Route: 042
     Dates: start: 20190502, end: 20191106
  58. CIPROFLOXACIN. [Concomitant]
     Active Substance: CIPROFLOXACIN
     Indication: PRODUCT USED FOR UNKNOWN INDICATION
     Dosage: 500 MG, QD
     Route: 048
     Dates: start: 201910, end: 20191009
  59. DERMOLATE [Concomitant]
     Indication: PRODUCT USED FOR UNKNOWN INDICATION
     Dosage: AS NEEDED
     Route: 061
     Dates: start: 20180605
  60. NACL [Concomitant]
     Active Substance: SODIUM CHLORIDE
     Dosage: 500 ML
     Route: 042
     Dates: start: 20181123, end: 20181123
  61. GENTAMYCIN [Concomitant]
     Active Substance: GENTAMICIN
     Dosage: 400 MG
     Route: 042
     Dates: start: 20181119, end: 20181119
  62. TRASTUZUMAB. [Suspect]
     Active Substance: TRASTUZUMAB
     Indication: BREAST CANCER
     Dosage: 600 MG, UNK
     Route: 058
     Dates: start: 20180202, end: 20180827
  63. FLUCONAZOLE. [Concomitant]
     Active Substance: FLUCONAZOLE
     Indication: PRODUCT USED FOR UNKNOWN INDICATION
     Dosage: TAKEN PRIOR TO STUDY
     Route: 048
     Dates: start: 20180202
  64. CHLORPHENAMINE [Concomitant]
     Active Substance: CHLORPHENIRAMINE MALEATE
     Route: 048
     Dates: start: 20190909, end: 20190915
  65. CLOTRIMAZOLE. [Concomitant]
     Active Substance: CLOTRIMAZOLE
     Indication: PRODUCT USED FOR UNKNOWN INDICATION
     Dosage: UNK
     Route: 061
     Dates: start: 20180125
  66. ZEROBASE [Concomitant]
     Active Substance: MINERAL OIL\PARAFFIN
     Indication: DRY SKIN
     Dosage: UNK
     Route: 061
  67. ONDANSETRON [Concomitant]
     Active Substance: ONDANSETRON
     Dosage: AS NEEDED
     Route: 048
     Dates: start: 20181216, end: 20190107
  68. RED BLOOD CELLS [Concomitant]
     Active Substance: HUMAN RED BLOOD CELL
     Indication: GASTROINTESTINAL HAEMORRHAGE
     Dosage: UNK
     Route: 042
     Dates: start: 20190511, end: 20190511
  69. FEXOFENADINE [Concomitant]
     Active Substance: FEXOFENADINE HYDROCHLORIDE
     Indication: SKIN ABRASION
     Dosage: UNK
     Route: 065
  70. ADCAL D3 [Concomitant]
     Active Substance: CALCIUM CARBONATE\CHOLECALCIFEROL
     Dosage: 2 DF
     Route: 048
     Dates: start: 20140127
  71. SUGAMMADEX [Concomitant]
     Active Substance: SUGAMMADEX
     Indication: PRODUCT USED FOR UNKNOWN INDICATION
     Dosage: 200 MG, QD
     Route: 042
     Dates: start: 20181220, end: 20181220
  72. CLARITHROMYCIN. [Concomitant]
     Active Substance: CLARITHROMYCIN
     Indication: PRODUCT USED FOR UNKNOWN INDICATION
     Dosage: 500 MG, QD
     Route: 048
     Dates: start: 20190717, end: 20190724
  73. TRASTUZUMAB EMTANSINE [Suspect]
     Active Substance: ADO-TRASTUZUMAB EMTANSINE
     Indication: BREAST CANCER
     Dosage: 420 MG, Q3W
     Route: 042
     Dates: start: 20181019, end: 20190927
  74. OMEPRAZOLE. [Concomitant]
     Active Substance: OMEPRAZOLE
     Indication: PRODUCT USED FOR UNKNOWN INDICATION
     Dosage: 20 MG, QD
     Route: 048
     Dates: start: 20091014
  75. AMLODIPINE [Concomitant]
     Active Substance: AMLODIPINE BESYLATE
     Indication: PRODUCT USED FOR UNKNOWN INDICATION
     Dosage: 10 MG, QD (TAKEN PRIOR TO STUDY)
     Route: 048
     Dates: start: 20180301
  76. RANITIDINE. [Concomitant]
     Active Substance: RANITIDINE
     Route: 048
     Dates: start: 20200212
  77. PIRITON [Concomitant]
     Active Substance: CHLORPHENIRAMINE MALEATE
     Indication: PRODUCT USED FOR UNKNOWN INDICATION
     Dosage: 4 MG
     Route: 048
     Dates: start: 20180125
  78. METRONIDAZOLE. [Concomitant]
     Active Substance: METRONIDAZOLE
     Dosage: 400 MG, QD
     Route: 048
     Dates: start: 20190918, end: 20190918
  79. PARACETAMOL [Concomitant]
     Active Substance: ACETAMINOPHEN
     Dosage: 1 G, UNK
     Route: 048
     Dates: start: 20180225, end: 20180301
  80. VANCOMYCIN [Concomitant]
     Active Substance: VANCOMYCIN
     Dosage: 1000 MG, QD
     Route: 042
     Dates: start: 20190527
  81. CHIROCAINE [Concomitant]
     Active Substance: LEVOBUPIVACAINE HYDROCHLORIDE
     Indication: PRODUCT USED FOR UNKNOWN INDICATION
     Dosage: UNK
     Route: 065
  82. DOXYCYCLINE. [Concomitant]
     Active Substance: DOXYCYCLINE
     Indication: PRODUCT USED FOR UNKNOWN INDICATION
     Dosage: 200 MG, QD
     Route: 048
     Dates: start: 20181113, end: 20181113
  83. DOXYCYCLINE. [Concomitant]
     Active Substance: DOXYCYCLINE
     Dosage: 100 MG
     Route: 048
     Dates: start: 20181113, end: 20181113
  84. ONDANSETRON [Concomitant]
     Active Substance: ONDANSETRON
     Dosage: 4 MG, QD
     Route: 048
     Dates: start: 20190920, end: 20190920
  85. SILVER NITRATE. [Concomitant]
     Active Substance: SILVER NITRATE
     Dosage: UNK
     Route: 061
     Dates: start: 20190510, end: 20190510
  86. SILVER NITRATE. [Concomitant]
     Active Substance: SILVER NITRATE
     Dosage: UNK
     Route: 061
     Dates: start: 20190730, end: 20190730
  87. FERROUS FUMARATE [Concomitant]
     Active Substance: FERROUS FUMARATE
     Indication: PRODUCT USED FOR UNKNOWN INDICATION
     Dosage: 210 MG, QD
     Route: 048
     Dates: start: 20190730
  88. GENTAMYCIN [Concomitant]
     Active Substance: GENTAMICIN
     Dosage: 400 MG
     Route: 042
     Dates: start: 20190528, end: 20190528
  89. FEMARA [Suspect]
     Active Substance: LETROZOLE
     Dosage: 2.5 MG, QD
     Route: 048
     Dates: start: 20180525, end: 20181011
  90. COCODAMOL [Concomitant]
     Active Substance: ACETAMINOPHEN\CODEINE PHOSPHATE
     Dosage: 1 DF
     Route: 065
     Dates: start: 20200302
  91. FLUCONAZOLE. [Concomitant]
     Active Substance: FLUCONAZOLE
     Indication: PRODUCT USED FOR UNKNOWN INDICATION
     Dosage: 100 MG, QD
     Route: 048
     Dates: start: 20180125
  92. CETRIZINE [Concomitant]
     Active Substance: CETIRIZINE HYDROCHLORIDE
     Indication: PRODUCT USED FOR UNKNOWN INDICATION
     Dosage: 10 UG
     Route: 048
     Dates: start: 20080430
  93. FLUCONAZOLE. [Concomitant]
     Active Substance: FLUCONAZOLE
     Dosage: 10 MG, QD
     Route: 048
     Dates: start: 20190909, end: 20190909
  94. METRONIDAZOLE. [Concomitant]
     Active Substance: METRONIDAZOLE
     Dosage: 400 MG, QD
     Route: 048
     Dates: start: 201910, end: 20191009
  95. TRANEXAMIC ACID. [Concomitant]
     Active Substance: TRANEXAMIC ACID
     Indication: PRODUCT USED FOR UNKNOWN INDICATION
     Dosage: UNK
     Route: 065
  96. VANCOMYCIN [Concomitant]
     Active Substance: VANCOMYCIN
     Dosage: 2000 MG, UNK
     Route: 042
     Dates: start: 20190526, end: 20190526
  97. ZOLEDRONIC ACID [Concomitant]
     Active Substance: ZOLEDRONIC ACID
     Indication: METASTASES TO BONE
     Dosage: UNK
     Route: 065
     Dates: start: 20181019
  98. ONDANSETRON [Concomitant]
     Active Substance: ONDANSETRON
     Dosage: 4 MG, QD
     Route: 048
     Dates: start: 20200214, end: 20200214
  99. COLECALCIFEROL [Concomitant]
     Active Substance: CHOLECALCIFEROL
     Dosage: 4 DF, QD,
     Route: 048
     Dates: start: 20140127
  100. COLECALCIFEROL [Concomitant]
     Active Substance: CHOLECALCIFEROL
     Dosage: UNK
     Route: 048
     Dates: start: 20180926
  101. SILVER NITRATE. [Concomitant]
     Active Substance: SILVER NITRATE
     Indication: HAEMORRHAGE
     Dosage: 1 UNIT
     Route: 061
     Dates: start: 20180329, end: 20180329
  102. GENTAMYCIN [Concomitant]
     Active Substance: GENTAMICIN
     Indication: SEPSIS
     Dosage: 400 MG
     Route: 011
     Dates: start: 20190911, end: 20190911
  103. FEMARA [Suspect]
     Active Substance: LETROZOLE
     Indication: BREAST CANCER
     Dosage: 2.5 MG, QD
     Route: 048
     Dates: start: 20180119, end: 20180126
  104. RANITIDINE. [Concomitant]
     Active Substance: RANITIDINE
     Indication: PRODUCT USED FOR UNKNOWN INDICATION
     Dosage: 50 MG, UNK (TAKEN PRIOR TO STUDY)
     Route: 042
  105. PENTASA [Concomitant]
     Active Substance: MESALAMINE
     Dosage: 4 G, QD
     Route: 048
     Dates: start: 20180730
  106. BENDROFLUMETHIAZIDE [Concomitant]
     Active Substance: BENDROFLUMETHIAZIDE
     Indication: PRODUCT USED FOR UNKNOWN INDICATION
     Dosage: 2.5 MG, QD
     Route: 048
     Dates: start: 20030114
  107. METRONIDAZOLE. [Concomitant]
     Active Substance: METRONIDAZOLE
     Dosage: 500 MG, QD
     Route: 048
     Dates: start: 20190911, end: 20190915
  108. AQUACEL [Concomitant]
     Active Substance: CARBOXYMETHYLCELLULOSE SODIUM
     Dosage: UNK
     Route: 061
     Dates: start: 20181220, end: 20190116
  109. ONDANSETRON [Concomitant]
     Active Substance: ONDANSETRON
     Indication: PRODUCT USED FOR UNKNOWN INDICATION
     Dosage: UNK
     Route: 065
  110. COLECALCIFEROL [Concomitant]
     Active Substance: CHOLECALCIFEROL
     Indication: PRODUCT USED FOR UNKNOWN INDICATION
     Dosage: 4 DF, QD
     Route: 048
     Dates: start: 20180920
  111. COLECALCIFEROL [Concomitant]
     Active Substance: CHOLECALCIFEROL
     Route: 048
     Dates: start: 20180920
  112. SILVER NITRATE. [Concomitant]
     Active Substance: SILVER NITRATE
     Dosage: UNK
     Route: 061
     Dates: start: 20190522, end: 20190522
  113. RED BLOOD CELLS [Concomitant]
     Active Substance: HUMAN RED BLOOD CELL
     Indication: HAEMORRHAGE
     Dosage: 3 UNIT
     Route: 042
     Dates: start: 20190523, end: 20190524
  114. AMOXICILLIN. [Concomitant]
     Active Substance: AMOXICILLIN
     Indication: PRODUCT USED FOR UNKNOWN INDICATION
     Dosage: 1 G, QD
     Route: 042
     Dates: start: 20190911, end: 20190915
  115. NACL [Concomitant]
     Active Substance: SODIUM CHLORIDE
     Indication: PRODUCT USED FOR UNKNOWN INDICATION
     Dosage: 500 ML
     Route: 042
     Dates: start: 20181122, end: 20181123

REACTIONS (10)
  - Bone pain [Recovered/Resolved]
  - Disease progression [Unknown]
  - Diarrhoea [Recovered/Resolved]
  - Mucosal inflammation [Recovered/Resolved]
  - Vomiting [Recovered/Resolved]
  - Arthralgia [Not Recovered/Not Resolved]
  - Oedema [Recovered/Resolved]
  - C-reactive protein increased [Recovered/Resolved]
  - Pain in extremity [Unknown]
  - Wound [Recovered/Resolved]

NARRATIVE: CASE EVENT DATE: 20180225
